FAERS Safety Report 7300911-3 (Version None)
Quarter: 2010Q4

REPORT INFORMATION
  Report Type: 
  Country: None (occurrence: None)
  Receive Date: 20101230
  Receipt Date: 20100924
  Transmission Date: 20110411
  Serious: Yes (Other)
  Sender: FDA-Public Use
  Company Number: 20100457

PATIENT
  Age: 36 Year
  Sex: Female

DRUGS (3)
  1. VENOFER [Suspect]
     Indication: ANAEMIA
     Dosage: 100 MG IN 250 ML NS/ 50 MIN INTRAVENOUS DRIP
     Route: 041
     Dates: start: 20100923, end: 20100923
  2. VENOFER [Suspect]
     Indication: ANAEMIA
     Dosage: 50 MG IN 100 ML NS OVER 25 MIN NTRAVENOUS DRIP
     Route: 041
  3. VALIUM [Concomitant]

REACTIONS (2)
  - CHEST DISCOMFORT [None]
  - HYPERHIDROSIS [None]
